FAERS Safety Report 9974175 (Version 1)
Quarter: 2014Q1

REPORT INFORMATION
  Report Type: Report from Study
  Country: US (occurrence: US)
  Receive Date: 20140306
  Receipt Date: 20140306
  Transmission Date: 20141002
  Serious: No
  Sender: FDA-Public Use
  Company Number: US-ABBVIE-13P-163-1155366-00

PATIENT
  Age: 58 Year
  Sex: Male

DRUGS (8)
  1. HUMIRA [Suspect]
     Indication: CROHN^S DISEASE
     Dosage: DAY 1
     Dates: start: 20130816, end: 20130816
  2. HUMIRA [Suspect]
  3. HUMIRA [Suspect]
  4. MESALAZINE [Concomitant]
     Indication: CROHN^S DISEASE
  5. FOSAMAX [Concomitant]
     Indication: BONE DENSITY DECREASED
     Dosage: 1 TAB WEEKLY
  6. FOSAMAX [Concomitant]
     Indication: OSTEOPENIA
  7. MULTIVITAMIN [Concomitant]
     Indication: PRODUCT USED FOR UNKNOWN INDICATION
     Dosage: DAILY
  8. CALCIUM [Concomitant]
     Indication: PRODUCT USED FOR UNKNOWN INDICATION
     Dosage: DAILY

REACTIONS (1)
  - Injection site haemorrhage [Recovered/Resolved]
